FAERS Safety Report 12009638 (Version 1)
Quarter: 2016Q1

REPORT INFORMATION
  Report Type: Spontaneous
  Country: US (occurrence: None)
  Receive Date: 20160203
  Receipt Date: 20160203
  Transmission Date: 20160526
  Serious: Yes (Hospitalization)
  Sender: FDA-Public Use
  Company Number: None

PATIENT
  Age: 72 Year
  Sex: Female

DRUGS (1)
  1. HARVONI [Suspect]
     Active Substance: LEDIPASVIR\SOFOSBUVIR
     Indication: HEPATITIS C
     Dosage: 1 TABLET, DAILY, BY MOUTH
     Dates: start: 20151201

REACTIONS (3)
  - Pneumonia [None]
  - Oedema peripheral [None]
  - Urinary tract infection [None]

NARRATIVE: CASE EVENT DATE: 20160115
